FAERS Safety Report 5937976-7 (Version None)
Quarter: 2008Q4

REPORT INFORMATION
  Report Type: 
  Country: None (occurrence: None)
  Receive Date: 20081031
  Receipt Date: 20081020
  Transmission Date: 20090506
  Serious: Yes (Hospitalization, Other)
  Sender: FDA-Public Use
  Company Number: AU-PFIZER INC-2008072758

PATIENT
  Sex: Male
  Weight: 87 kg

DRUGS (11)
  1. CHAMPIX [Suspect]
     Indication: SMOKING CESSATION THERAPY
     Route: 048
     Dates: start: 20080501, end: 20080101
  2. WARFARIN SODIUM [Suspect]
     Indication: DEEP VEIN THROMBOSIS
     Dates: end: 20080101
  3. ACETAMINOPHEN [Concomitant]
     Indication: PAIN
     Route: 048
  4. MS CONTIN [Concomitant]
     Indication: PAIN
  5. COVERSYL [Concomitant]
     Indication: CARDIAC DISORDER
     Route: 048
  6. LASIX [Concomitant]
     Indication: SWELLING
     Route: 048
  7. ALVESCO [Concomitant]
     Indication: CHRONIC OBSTRUCTIVE PULMONARY DISEASE
     Route: 055
  8. SPIRIVA [Concomitant]
     Indication: CHRONIC OBSTRUCTIVE PULMONARY DISEASE
     Route: 055
  9. VENTOLIN [Concomitant]
     Route: 055
  10. ELOCON [Concomitant]
     Indication: PSORIASIS
     Route: 061
  11. MOBIC [Concomitant]
     Indication: ARTHRITIS

REACTIONS (2)
  - HAEMORRHAGE [None]
  - INTERNATIONAL NORMALISED RATIO INCREASED [None]
